FAERS Safety Report 9954332 (Version 3)
Quarter: 2014Q2

REPORT INFORMATION
  Report Type: Spontaneous
  Country: JP (occurrence: JP)
  Receive Date: 20140304
  Receipt Date: 20140414
  Transmission Date: 20141212
  Serious: Yes (Other)
  Sender: FDA-Public Use
  Company Number: JP-BRISTOL-MYERS SQUIBB COMPANY-20349387

PATIENT
  Age: 43 Year
  Sex: Female

DRUGS (1)
  1. ABILIFY TABS [Suspect]
     Route: 048

REACTIONS (2)
  - Loss of consciousness [Unknown]
  - Orthostatic hypotension [Unknown]
